FAERS Safety Report 20018905 (Version 1)
Quarter: 2021Q4

REPORT INFORMATION
  Report Type: Other
  Country: SE (occurrence: None)
  Receive Date: 20211101
  Receipt Date: 20211101
  Transmission Date: 20220303
  Serious: Yes (Hospitalization, Other)
  Sender: FDA-Public Use
  Company Number: SE-ROCHE-2944150

PATIENT
  Age: 48 Year
  Sex: Male

DRUGS (12)
  1. RITUXIMAB [Suspect]
     Active Substance: RITUXIMAB
     Indication: Follicular lymphoma
     Route: 065
     Dates: start: 2005
  2. RITUXIMAB [Suspect]
     Active Substance: RITUXIMAB
     Route: 065
     Dates: start: 202008, end: 202011
  3. BENDAMUSTINE [Concomitant]
     Active Substance: BENDAMUSTINE
     Indication: Follicular lymphoma
     Route: 065
     Dates: start: 202008, end: 202011
  4. FLUCLOXACILLIN [Concomitant]
     Active Substance: FLUCLOXACILLIN
  5. CEFOTAXIME [Concomitant]
     Active Substance: CEFOTAXIME SODIUM
     Route: 042
  6. SULFAMETHOXAZOLE\TRIMETHOPRIM [Concomitant]
     Active Substance: SULFAMETHOXAZOLE\TRIMETHOPRIM
  7. CLINDAMYCIN [Concomitant]
     Active Substance: CLINDAMYCIN
  8. CIPROFLOXACIN [Concomitant]
     Active Substance: CIPROFLOXACIN
  9. APIXABAN [Concomitant]
     Active Substance: APIXABAN
     Route: 048
  10. TINZAPARIN [Concomitant]
     Active Substance: TINZAPARIN
  11. CLOXACILLIN [Concomitant]
     Active Substance: CLOXACILLIN
  12. PIPERACILLIN SODIUM\TAZOBACTAM SODIUM [Concomitant]
     Active Substance: PIPERACILLIN SODIUM\TAZOBACTAM SODIUM

REACTIONS (4)
  - Bacterial infection [Unknown]
  - Zoonosis [Unknown]
  - Thrombosis [Unknown]
  - Hypogammaglobulinaemia [Unknown]
